FAERS Safety Report 13959169 (Version 1)
Quarter: 2017Q3

REPORT INFORMATION
  Report Type: Spontaneous
  Country: PK (occurrence: PK)
  Receive Date: 20170912
  Receipt Date: 20170912
  Transmission Date: 20171128
  Serious: Yes (Other)
  Sender: FDA-Public Use
  Company Number: PK-ROCHE-1990615

PATIENT
  Sex: Female

DRUGS (1)
  1. RISTOVA [Suspect]
     Active Substance: RITUXIMAB
     Indication: VASCULITIS
     Route: 042

REACTIONS (4)
  - Heart rate irregular [Recovered/Resolved]
  - Pyrexia [Recovered/Resolved]
  - Dyspnoea [Recovering/Resolving]
  - Hypersensitivity [Unknown]

NARRATIVE: CASE EVENT DATE: 20170830
